FAERS Safety Report 13078461 (Version 5)
Quarter: 2018Q3

REPORT INFORMATION
  Report Type: Spontaneous
  Country: JP (occurrence: JP)
  Receive Date: 20170102
  Receipt Date: 20180712
  Transmission Date: 20181010
  Serious: Yes (Hospitalization)
  Sender: FDA-Public Use
  Company Number: PHJP2016JP031365

PATIENT
  Age: 32 Year
  Sex: Female

DRUGS (2)
  1. PREDNISOLONE. [Suspect]
     Active Substance: PREDNISOLONE
     Indication: DERMATOMYOSITIS
     Dosage: 15 MG, UNK
     Route: 048
     Dates: start: 19961003
  2. NEORAL [Suspect]
     Active Substance: CYCLOSPORINE
     Indication: DERMATOMYOSITIS
     Dosage: 150 MG, UNK
     Route: 048
     Dates: start: 20030204, end: 20161005

REACTIONS (10)
  - Mycosis fungoides [Recovered/Resolved]
  - Abdominal pain upper [Recovered/Resolved]
  - Pancreatic neoplasm [Recovered/Resolved]
  - Pancreatitis acute [Recovered/Resolved]
  - Inflammation [Unknown]
  - Rash papular [Recovered/Resolved]
  - Pancreatic duct dilatation [Recovered/Resolved]
  - Pyrexia [Recovered/Resolved]
  - Product use in unapproved indication [Unknown]
  - Amylase increased [Unknown]

NARRATIVE: CASE EVENT DATE: 20030204
